FAERS Safety Report 10712953 (Version 1)
Quarter: 2015Q1

REPORT INFORMATION
  Report Type: Report from Study
  Country: AU (occurrence: AU)
  Receive Date: 20150115
  Receipt Date: 20150115
  Transmission Date: 20150721
  Serious: Yes (Other)
  Sender: FDA-Public Use
  Company Number: PHHY2014AU154524

PATIENT
  Age: 34 Year
  Sex: Male
  Weight: 114 kg

DRUGS (6)
  1. CLOZARIL [Suspect]
     Active Substance: CLOZAPINE
     Dosage: 500 MG, UNK
     Route: 065
     Dates: start: 20080213
  2. OLANZAPINE. [Concomitant]
     Active Substance: OLANZAPINE
     Indication: PRODUCT USED FOR UNKNOWN INDICATION
     Dosage: 15 MG, QD (5 MG AT MORNING, 10 MG AT NIGHT)
     Route: 065
  3. CLOZARIL [Suspect]
     Active Substance: CLOZAPINE
     Dosage: 500 MG, UNK
     Route: 065
     Dates: start: 20110411
  4. CLOZARIL [Suspect]
     Active Substance: CLOZAPINE
     Indication: SCHIZOPHRENIA
     Dosage: 400 MG, (100 MG AT MORNING, 300 MG AT NIGHT)
     Route: 065
     Dates: start: 20031111
  5. AMISULPRIDE [Concomitant]
     Active Substance: AMISULPRIDE
     Indication: PRODUCT USED FOR UNKNOWN INDICATION
     Dosage: 400 MG, BID
     Route: 065
  6. FLUOXETINE [Concomitant]
     Active Substance: FLUOXETINE\FLUOXETINE HYDROCHLORIDE
     Indication: PRODUCT USED FOR UNKNOWN INDICATION
     Dosage: 20 MG, QD
     Route: 065

REACTIONS (19)
  - Cardiac disorder [Unknown]
  - Electrocardiogram QT prolonged [Unknown]
  - Anxiety [Unknown]
  - Fear [Unknown]
  - Gamma-glutamyltransferase increased [Unknown]
  - Psychotic disorder [Unknown]
  - Palpitations [Unknown]
  - Blood bicarbonate decreased [Unknown]
  - Sinus tachycardia [Unknown]
  - Blood cholesterol increased [Unknown]
  - Alanine aminotransferase increased [Unknown]
  - Right ventricular hypertrophy [Unknown]
  - Hallucination, auditory [Unknown]
  - Delusion [Unknown]
  - Panic attack [Unknown]
  - Blood phosphorus decreased [Unknown]
  - Blood alkaline phosphatase increased [Unknown]
  - Central obesity [Unknown]
  - Blood uric acid increased [Unknown]

NARRATIVE: CASE EVENT DATE: 20120528
